FAERS Safety Report 15332791 (Version 1)
Quarter: 2018Q3

REPORT INFORMATION
  Report Type: Spontaneous
  Country: US (occurrence: US)
  Receive Date: 20180830
  Receipt Date: 20180830
  Transmission Date: 20181010
  Serious: Yes (Other)
  Sender: FDA-Public Use
  Company Number: US-ASTELLAS-2018US037879

PATIENT
  Age: 71 Year
  Sex: Male

DRUGS (1)
  1. XTANDI [Suspect]
     Active Substance: ENZALUTAMIDE
     Indication: PROSTATE CANCER
     Route: 048
     Dates: start: 20180727, end: 201807

REACTIONS (4)
  - Insomnia [Unknown]
  - Feeling abnormal [Recovering/Resolving]
  - Abdominal discomfort [Recovering/Resolving]
  - Flank pain [Recovering/Resolving]

NARRATIVE: CASE EVENT DATE: 201807
